FAERS Safety Report 26097835 (Version 2)
Quarter: 2025Q4

REPORT INFORMATION
  Report Type: Spontaneous
  Country: EU (occurrence: EU)
  Receive Date: 20251127
  Receipt Date: 20251211
  Transmission Date: 20260118
  Serious: Yes (Hospitalization)
  Sender: AMGEN
  Company Number: EU-UCBSA-2025073783

PATIENT
  Age: 65 Year
  Sex: Female
  Weight: 68 kg

DRUGS (6)
  1. EVENITY [Suspect]
     Active Substance: ROMOSOZUMAB-AQQG
     Indication: Osteoporosis postmenopausal
     Dosage: 210 MILLIGRAM, MONTHLY (QM)
     Route: 065
     Dates: start: 20251112, end: 20251112
  2. ELIQUIS [Concomitant]
     Active Substance: APIXABAN
     Indication: Product used for unknown indication
     Dosage: 5 MILLIGRAM, 2X/DAY (BID)
     Route: 065
  3. Cratae [Concomitant]
     Indication: Product used for unknown indication
     Dosage: 450 MILLIGRAM, ONCE DAILY (QD)
     Route: 065
  4. CHOLECALCIFEROL [Concomitant]
     Active Substance: CHOLECALCIFEROL
     Indication: Product used for unknown indication
     Dosage: 1000 MILLIGRAM, ONCE DAILY (QD)
     Route: 065
  5. Vitamin d3 + k2 [Concomitant]
     Indication: Product used for unknown indication
     Dosage: 10,000/200 MILLIGRAMS
     Route: 065
  6. Psyllium seeds [Concomitant]
     Indication: Product used for unknown indication
     Dosage: 1 TABLE SPOON
     Route: 065

REACTIONS (2)
  - Cardiovascular disorder [Recovered/Resolved]
  - Hypertension [Recovered/Resolved]

NARRATIVE: CASE EVENT DATE: 20251112
